FAERS Safety Report 16388624 (Version 1)
Quarter: 2019Q2

REPORT INFORMATION
  Report Type: Spontaneous
  Country: CN (occurrence: CN)
  Receive Date: 20190604
  Receipt Date: 20190604
  Transmission Date: 20190711
  Serious: Yes (Other)
  Sender: FDA-Public Use
  Company Number: CN-PFIZER INC-2019236705

PATIENT
  Age: 92 Year
  Sex: Male
  Weight: 70 kg

DRUGS (6)
  1. VORICONAZOLE. [Suspect]
     Active Substance: VORICONAZOLE
     Indication: LUNG INFECTION
     Dosage: 200 MG, 2X/DAY (Q12H)
     Route: 041
     Dates: start: 20190513, end: 20190527
  2. PANTOPRAZOLE [Concomitant]
     Active Substance: PANTOPRAZOLE
     Indication: ABDOMINAL DISCOMFORT
     Dosage: 40 MG, 1X/DAY
     Route: 041
     Dates: start: 20190516, end: 20190531
  3. YI NUO SHU [Concomitant]
     Dosage: 30 MG, 2X/DAY
     Route: 041
     Dates: end: 20190531
  4. SODIUM CHLORIDE. [Concomitant]
     Active Substance: SODIUM CHLORIDE
     Indication: VEHICLE SOLUTION USE
     Dosage: 100 ML, 2X/DAY
     Route: 041
     Dates: start: 20190513, end: 20190527
  5. YI NUO SHU [Concomitant]
     Indication: SPUTUM ABNORMAL
     Dosage: 30 MG, 2X/DAY
     Route: 041
     Dates: start: 20190510
  6. THYMALFASIN [Concomitant]
     Active Substance: THYMALFASIN
     Indication: IMMUNE SYSTEM DISORDER
     Dosage: 1.6 MG, 2X/WEEK(BIW)
     Route: 058
     Dates: start: 20190510, end: 20190531

REACTIONS (4)
  - Rash erythematous [Recovering/Resolving]
  - Papule [Recovering/Resolving]
  - Pruritus [Recovering/Resolving]
  - Dry skin [Recovering/Resolving]

NARRATIVE: CASE EVENT DATE: 20190518
